FAERS Safety Report 9540303 (Version 1)
Quarter: 2013Q3

REPORT INFORMATION
  Report Type: Spontaneous
  Country: FR (occurrence: None)
  Receive Date: 20130917
  Receipt Date: 20130917
  Transmission Date: 20140515
  Serious: Yes (Hospitalization)
  Sender: FDA-Public Use
  Company Number: 1887933

PATIENT
  Age: 67 Year
  Sex: Male

DRUGS (8)
  1. CARBOPLATIN [Suspect]
     Indication: B-CELL LYMPHOMA
     Dosage: 365 MG MILLIGRAMS 1 DAY INTRAVENOUS (NOT OTHERWISE SPECIFIED)?
     Route: 042
     Dates: start: 20130726, end: 20130726
  2. IFOSFAMIDE [Suspect]
     Indication: B-CELL LYMPHOMA
     Dosage: 5 G/M^2 (5) (UNKNOWN) INTRAVENOUS (NOT OTHERWISE SPECIFIED)?
     Route: 042
     Dates: start: 20130726, end: 20130726
  3. ETOPOSIDE [Suspect]
     Indication: B-CELL LYMPHOMA
     Route: 042
     Dates: start: 20130725, end: 20130727
  4. MABTHERA [Suspect]
     Indication: B-CELL LYMPHOMA
     Route: 042
     Dates: start: 20130725, end: 20130725
  5. UROMITEXAN [Suspect]
     Indication: PRODUCT USED FOR UNKNOWN INDICATION
     Dosage: 2 INJECTIONS
     Route: 042
     Dates: start: 20130726, end: 20130726
  6. FASTURTEC [Suspect]
     Indication: PROPHYLAXIS
     Dosage: INTRAVENOUS (NOT OTHERWISE SPECIFIED)?
     Route: 042
     Dates: start: 20130726, end: 20130726
  7. CEFTRIAXONE PANPHARMA [Suspect]
     Indication: PRODUCT USED FOR UNKNOWN INDICATION
     Dosage: INTRAVENOUS (NOT OTHERWISE SPECIFIED)?
     Route: 042
     Dates: start: 20130726, end: 20130729
  8. AMIKACINE [Suspect]
     Indication: PRODUCT USED FOR UNKNOWN INDICATION
     Dosage: INTRAVENOUS (NOT OTHERWISE SPECIFIED)?
     Route: 042
     Dates: start: 20130726, end: 20130729

REACTIONS (5)
  - Encephalopathy [None]
  - Blood albumin decreased [None]
  - Depressed level of consciousness [None]
  - Chorea [None]
  - Blood creatinine increased [None]
